FAERS Safety Report 9147773 (Version 3)
Quarter: 2016Q1

REPORT INFORMATION
  Report Type: Spontaneous
  Country: FR (occurrence: FR)
  Receive Date: 20130307
  Receipt Date: 20160330
  Transmission Date: 20160526
  Serious: Yes (Hospitalization)
  Sender: FDA-Public Use
  Company Number: FR-VERTEX PHARMACEUTICALS INC.-2013-003200

PATIENT
  Age: 62 Year
  Sex: Female

DRUGS (9)
  1. STAGID [Concomitant]
     Active Substance: METFORMIN PAMOATE
     Dosage: DOSAGE FORM: UNSPECIFIED
     Route: 065
  2. RIBAVIRIN. [Concomitant]
     Active Substance: RIBAVIRIN
     Indication: CHRONIC HEPATITIS C
     Dosage: UNK, BID
     Route: 048
     Dates: start: 20120511, end: 201207
  3. STAGID [Concomitant]
     Active Substance: METFORMIN PAMOATE
     Route: 065
  4. NEORECORMON [Concomitant]
     Active Substance: ERYTHROPOIETIN
     Dosage: 30000 IU, UNK
     Route: 065
  5. STAGID [Concomitant]
     Active Substance: METFORMIN PAMOATE
     Indication: PRODUCT USED FOR UNKNOWN INDICATION
     Dosage: 700 MG, UNK
     Route: 065
  6. INCIVO [Suspect]
     Active Substance: TELAPREVIR
     Indication: CHRONIC HEPATITIS C
     Dosage: 750 ?G, TID
     Route: 065
     Dates: start: 20120511, end: 201207
  7. PEGASYS [Suspect]
     Active Substance: PEGINTERFERON ALFA-2A
     Indication: CHRONIC HEPATITIS C
     Dosage: 180 ?G, QW
     Route: 058
     Dates: start: 20120511, end: 201207
  8. NEORECORMON [Concomitant]
     Active Substance: ERYTHROPOIETIN
     Indication: PRODUCT USED FOR UNKNOWN INDICATION
     Dosage: 30000 IU, UNK
     Route: 065
  9. NEORECORMON [Concomitant]
     Active Substance: ERYTHROPOIETIN
     Dosage: 30000 IU, UNK
     Route: 065

REACTIONS (8)
  - Pyrexia [Unknown]
  - Axonal neuropathy [Unknown]
  - Rash maculo-papular [Recovered/Resolved]
  - Ischaemia [Unknown]
  - Neuropathy peripheral [Recovered/Resolved]
  - Rheumatoid factor increased [Unknown]
  - Toxic skin eruption [Unknown]
  - Prurigo [Unknown]

NARRATIVE: CASE EVENT DATE: 20120624
